FAERS Safety Report 9663897 (Version 3)
Quarter: 2013Q4

REPORT INFORMATION
  Report Type: Spontaneous
  Country: JP (occurrence: JP)
  Receive Date: 20131101
  Receipt Date: 20131125
  Transmission Date: 20140711
  Serious: Yes (Hospitalization)
  Sender: FDA-Public Use
  Company Number: JP-ASTELLAS-2013JP011836

PATIENT
  Age: 79 Year
  Sex: Female

DRUGS (7)
  1. VESICARE [Suspect]
     Indication: HYPERTONIC BLADDER
     Dosage: 2.5 MG, UID/QD
     Route: 048
     Dates: start: 20131003, end: 20131010
  2. MYSLEE [Concomitant]
     Indication: INSOMNIA
     Dosage: 10 MG, UID/QD
     Route: 048
  3. LIPITOR [Concomitant]
     Indication: DYSLIPIDAEMIA
     Dosage: 5 MG, UID/QD
     Route: 048
  4. NORVASC [Concomitant]
     Dosage: 2.5 MG, UNKNOWN/D
     Route: 048
  5. TRAMADOL HYDROCHLORIDE AND ACETAMINOPHEN [Concomitant]
     Route: 048
  6. HADODOLIN                          /00498201/ [Concomitant]
     Route: 048
  7. PERSANTIN [Concomitant]
     Route: 048

REACTIONS (3)
  - Drug ineffective [Unknown]
  - Hypertonic bladder [Unknown]
  - Bile duct cancer [Unknown]
